FAERS Safety Report 6072374-X (Version None)
Quarter: 2009Q1

REPORT INFORMATION
  Report Type: 
  Country: None (occurrence: None)
  Receive Date: 20090210
  Receipt Date: 20090205
  Transmission Date: 20090719
  Serious: Yes (Death, Hospitalization)
  Sender: FDA-Public Use
  Company Number: PHHY2009JP01574

PATIENT
  Age: 50 Year
  Sex: Male

DRUGS (15)
  1. TEGRETOL [Suspect]
     Indication: EPILEPSY
     Dosage: 400 MG
     Route: 048
     Dates: end: 20050112
  2. PHENYTOIN [Suspect]
     Indication: EPILEPSY
     Dosage: 200 MG
     Route: 048
     Dates: end: 20050112
  3. VALPROATE SODIUM [Suspect]
     Indication: CONVULSION
     Dosage: 2000 MG
     Route: 048
     Dates: end: 20050112
  4. VALPROATE SODIUM [Suspect]
     Dosage: 600 MG, UNK
  5. ZONISAMIDE [Suspect]
     Dosage: 400 MG
     Route: 048
     Dates: end: 20050112
  6. MAGNESIUM OXIDE [Concomitant]
     Dosage: 1.5 MG
     Route: 048
  7. CEFTRIAXONE SODIUM [Concomitant]
     Indication: PNEUMONIA
     Dosage: UNK
     Dates: start: 20041101
  8. IMIPENEM [Concomitant]
     Indication: PNEUMONIA
     Dosage: 1 G
     Dates: start: 20041101, end: 20050104
  9. MINOCYCLINE HYDROCHLORIDE [Concomitant]
     Indication: PNEUMONIA
     Dosage: UNK
     Dates: start: 20041101
  10. VITAMEDIN CAPSULE [Concomitant]
     Dosage: 500 MG
  11. VITACIMIN [Concomitant]
     Dosage: 500 MG
     Dates: start: 20041229
  12. PANTOL [Concomitant]
     Dosage: 500 MG
     Dates: start: 20041229
  13. MIDAZOLAM HCL [Concomitant]
     Dosage: 50 MG, UNK
  14. FOLIAMIN [Concomitant]
     Dosage: 15 MG, UNK
     Route: 058
  15. PN-TWIN NO. 2 [Concomitant]

REACTIONS (9)
  - ANAEMIA MEGALOBLASTIC [None]
  - BLOOD LACTATE DEHYDROGENASE INCREASED [None]
  - CONVULSION [None]
  - DISSEMINATED INTRAVASCULAR COAGULATION [None]
  - EPISTAXIS [None]
  - FOLATE DEFICIENCY [None]
  - GRANULOCYTES ABNORMAL [None]
  - PNEUMONIA [None]
  - PSEUDOMONAS INFECTION [None]
